FAERS Safety Report 7587569-3 (Version None)
Quarter: 2011Q3

REPORT INFORMATION
  Report Type: 
  Country: None (occurrence: None)
  Receive Date: 20110704
  Receipt Date: 20110620
  Transmission Date: 20111222
  Serious: Yes (Hospitalization)
  Sender: FDA-Public Use
  Company Number: PHHY2011US50814

PATIENT
  Sex: Female
  Weight: 57.143 kg

DRUGS (5)
  1. EXJADE [Suspect]
     Indication: SICKLE CELL ANAEMIA
     Dosage: 1000 MG, QD
     Route: 048
     Dates: start: 20100604
  2. HYDREA [Concomitant]
     Indication: SICKLE CELL ANAEMIA
     Dosage: 1500 MG, QD
     Route: 048
  3. FOLIC ACID [Concomitant]
     Indication: SICKLE CELL ANAEMIA
     Dosage: 1 MG, QD
     Route: 048
  4. PERCOCET [Concomitant]
     Indication: SICKLE CELL ANAEMIA
     Dosage: 5 MG, QD
  5. EXJADE [Suspect]
     Indication: IRON OVERLOAD

REACTIONS (17)
  - PALLOR [None]
  - LUNG INFILTRATION [None]
  - SICKLE CELL ANAEMIA WITH CRISIS [None]
  - PYREXIA [None]
  - EMOTIONAL DISTRESS [None]
  - RESPIRATORY TRACT INFECTION [None]
  - PULMONARY CONGESTION [None]
  - BACK PAIN [None]
  - HAEMOLYTIC ANAEMIA [None]
  - CHILLS [None]
  - PALPITATIONS [None]
  - GASTROINTESTINAL INFECTION [None]
  - UTERINE DISORDER [None]
  - ARTHRALGIA [None]
  - BONE PAIN [None]
  - MUSCULOSKELETAL CHEST PAIN [None]
  - BLOOD LACTATE DEHYDROGENASE INCREASED [None]
